FAERS Safety Report 13334602 (Version 2)
Quarter: 2017Q1

REPORT INFORMATION
  Report Type: Spontaneous
  Country: AT (occurrence: AT)
  Receive Date: 20170314
  Receipt Date: 20170323
  Transmission Date: 20170428
  Serious: Yes (Death, Hospitalization, Other)
  Sender: FDA-Public Use
  Company Number: AT-JNJFOC-20170311483

PATIENT

DRUGS (2)
  1. USTEKINUMAB [Suspect]
     Active Substance: USTEKINUMAB
     Indication: PSORIASIS
     Route: 058
  2. USTEKINUMAB [Suspect]
     Active Substance: USTEKINUMAB
     Indication: PSORIASIS
     Route: 058

REACTIONS (28)
  - Gastrointestinal disorder [Unknown]
  - Weight increased [Unknown]
  - Drug ineffective [Unknown]
  - Pruritus [Unknown]
  - Gastritis [Unknown]
  - Cerebrovascular accident [Unknown]
  - Autoimmune uveitis [Unknown]
  - Multiple sclerosis [Unknown]
  - Bronchitis [Unknown]
  - Mood altered [Unknown]
  - Neoplasm malignant [Unknown]
  - Injection site reaction [Unknown]
  - Benign neoplasm [Unknown]
  - Death [Fatal]
  - Arrhythmia [Unknown]
  - Pancreatitis [Unknown]
  - Fatigue [Unknown]
  - Headache [Unknown]
  - Rash [Unknown]
  - Cardiac death [Fatal]
  - Myocardial infarction [Unknown]
  - Neoplasm [Unknown]
  - Myalgia [Unknown]
  - Neuropathy peripheral [Unknown]
  - Alopecia areata [Unknown]
  - Infection [Unknown]
  - Inflammation [Unknown]
  - Weight decreased [Unknown]
